FAERS Safety Report 19081078 (Version 1)
Quarter: 2021Q2

REPORT INFORMATION
  Report Type: Other
  Country: ID (occurrence: ID)
  Receive Date: 20210401
  Receipt Date: 20210401
  Transmission Date: 20210717
  Serious: Yes (Other)
  Sender: FDA-Public Use
  Company Number: ID-ROCHE-2797906

PATIENT
  Age: 40 Year
  Sex: Female

DRUGS (1)
  1. MYCOPHENOLATE MOFETIL. [Suspect]
     Active Substance: MYCOPHENOLATE MOFETIL
     Indication: PSORIASIS
     Dosage: TAPERED DOWN GRADUALLY UNTIL 12 WEEKS
     Route: 065

REACTIONS (1)
  - Drug-induced liver injury [Unknown]
